FAERS Safety Report 21140969 (Version 2)
Quarter: 2022Q3

REPORT INFORMATION
  Report Type: Spontaneous
  Country: US (occurrence: None)
  Receive Date: 20220728
  Receipt Date: 20220803
  Transmission Date: 20221026
  Serious: Yes (Life-Threatening, Hospitalization, Disabling)
  Sender: FDA-Public Use
  Company Number: US-ROCHE-3147805

PATIENT
  Age: 66 Year
  Sex: Male
  Weight: 82.4 kg

DRUGS (1)
  1. TNKASE [Suspect]
     Active Substance: TENECTEPLASE
     Indication: Ischaemic stroke
     Dosage: DOSE WAS CALCULATED APPROPRIATELY AT 0.25 MG/KG FOR TOTAL OF 18.5 M
     Route: 042

REACTIONS (3)
  - Brain stem haemorrhage [Not Recovered/Not Resolved]
  - Hemiparesis [Unknown]
  - Off label use [Unknown]

NARRATIVE: CASE EVENT DATE: 20220607
